FAERS Safety Report 7197681-9 (Version None)
Quarter: 2010Q4

REPORT INFORMATION
  Report Type: 
  Country: None (occurrence: None)
  Receive Date: 20101227
  Receipt Date: 20101214
  Transmission Date: 20110411
  Serious: Yes (Hospitalization)
  Sender: FDA-Public Use
  Company Number: US-ELI_LILLY_AND_COMPANY-US201011005475

PATIENT
  Sex: Female
  Weight: 45.805 kg

DRUGS (9)
  1. FORTEO [Suspect]
     Indication: OSTEOPOROSIS
     Dosage: 20 UG, DAILY (1/D)
     Route: 058
     Dates: start: 20100226
  2. CALCIUM [Concomitant]
  3. VITAMIN D [Concomitant]
  4. CLINDAMYCIN [Concomitant]
  5. DIGOXIN [Concomitant]
  6. RYTHMOL [Concomitant]
  7. SPIRIVA [Concomitant]
  8. MOBIC [Concomitant]
  9. BETAPROL [Concomitant]

REACTIONS (1)
  - ATRIAL FIBRILLATION [None]
